FAERS Safety Report 5053585-9 (Version None)
Quarter: 2006Q3

REPORT INFORMATION
  Report Type: 
  Country: None (occurrence: None)
  Receive Date: 20060718
  Receipt Date: 20060629
  Transmission Date: 20061208
  Serious: Yes (Other)
  Sender: FDA-Public Use
  Company Number: GB-AVENTIS-200616870GDDC

PATIENT
  Age: 56 Year
  Sex: Female

DRUGS (1)
  1. ARAVA [Suspect]
     Dosage: DOSE: UNK
     Route: 048
     Dates: start: 20000101

REACTIONS (4)
  - CELLULITIS [None]
  - NEUTROPENIA [None]
  - SJOGREN'S SYNDROME [None]
  - SKIN ULCER [None]
